FAERS Safety Report 19711927 (Version 5)
Quarter: 2021Q3

REPORT INFORMATION
  Report Type: Report from Study
  Country: US (occurrence: US)
  Receive Date: 20210817
  Receipt Date: 20210907
  Transmission Date: 20211014
  Serious: Yes (Hospitalization)
  Sender: FDA-Public Use
  Company Number: US-KARYOPHARM-2021KPT000779

PATIENT
  Age: 69 Year
  Sex: Male
  Weight: 105.6 kg

DRUGS (2)
  1. SELINEXOR [Suspect]
     Active Substance: SELINEXOR
     Indication: LIPOSARCOMA
     Dosage: 60 MG, 2X/WEEK
     Route: 048
     Dates: start: 20210527, end: 20210529
  2. SELINEXOR [Suspect]
     Active Substance: SELINEXOR
     Dosage: 60 MG, 2X/WEEK
     Route: 048
     Dates: start: 20210625, end: 202108

REACTIONS (6)
  - Pleural effusion [Not Recovered/Not Resolved]
  - Atrial fibrillation [Recovered/Resolved]
  - Nausea [Unknown]
  - Pericardial effusion [Recovered/Resolved]
  - Cardiac failure [Recovered/Resolved]
  - Decreased appetite [Unknown]

NARRATIVE: CASE EVENT DATE: 20210602
